FAERS Safety Report 5207119-6 (Version None)
Quarter: 2007Q1

REPORT INFORMATION
  Report Type: 
  Country: None (occurrence: None)
  Receive Date: 20070112
  Receipt Date: 20070109
  Transmission Date: 20070707
  Serious: Yes (Other)
  Sender: FDA-Public Use
  Company Number: US-ROCHE-459664

PATIENT
  Age: 76 Year
  Sex: Female

DRUGS (1)
  1. BONIVA [Suspect]
     Indication: OSTEOPOROSIS
     Dosage: DOSAGE REGIMEN REPORTED AS 150/MONTH
     Route: 048
     Dates: start: 20060515

REACTIONS (1)
  - MACULAR DEGENERATION [None]
